FAERS Safety Report 11917895 (Version 1)
Quarter: 2016Q1

REPORT INFORMATION
  Report Type: Other
  Country: US (occurrence: US)
  Receive Date: 20160114
  Receipt Date: 20160114
  Transmission Date: 20160526
  Serious: No
  Sender: FDA-Public Use
  Company Number: US-DEP_02800_2015

PATIENT
  Sex: Female

DRUGS (3)
  1. IBUPROFEN. [Concomitant]
     Active Substance: IBUPROFEN
     Indication: PRODUCT USED FOR UNKNOWN INDICATION
     Dosage: DF
  2. NUCYNTA [Suspect]
     Active Substance: TAPENTADOL HYDROCHLORIDE
     Indication: LOWER LIMB FRACTURE
     Dosage: 100 MG THREE TIMES DAILY AS NEEDED
     Route: 048
     Dates: start: 2014
  3. NUCYNTA ER [Suspect]
     Active Substance: TAPENTADOL HYDROCHLORIDE
     Indication: LOWER LIMB FRACTURE
     Route: 048
     Dates: start: 2014

REACTIONS (1)
  - Drug screen positive [Unknown]
